FAERS Safety Report 7950418-5 (Version None)
Quarter: 2011Q4

REPORT INFORMATION
  Report Type: 
  Country: None (occurrence: None)
  Receive Date: 20111130
  Receipt Date: 20111116
  Transmission Date: 20120403
  Serious: Yes (Other)
  Sender: FDA-Public Use
  Company Number: GB-MYLANLABS-2011S1023869

PATIENT
  Age: 48 Year
  Sex: Male

DRUGS (5)
  1. OXALIPLATIN [Suspect]
     Indication: COLON CANCER METASTATIC
  2. AVASTIN [Suspect]
     Indication: COLON CANCER METASTATIC
     Dates: end: 20110727
  3. CAPECITABINE [Suspect]
     Indication: COLON CANCER METASTATIC
  4. FLUOROURACIL [Suspect]
     Indication: COLON CANCER METASTATIC
     Dates: end: 20110809
  5. IRINOTECAN HCL [Suspect]
     Indication: COLON CANCER METASTATIC
     Dates: end: 20110727

REACTIONS (3)
  - DISEASE PROGRESSION [None]
  - HAND FRACTURE [None]
  - COLON CANCER METASTATIC [None]
